FAERS Safety Report 9669903 (Version 1)
Quarter: 2013Q4

REPORT INFORMATION
  Report Type: Spontaneous
  Country: US (occurrence: None)
  Receive Date: 20131104
  Receipt Date: 20131104
  Transmission Date: 20140711
  Serious: Yes (Hospitalization)
  Sender: FDA-Public Use
  Company Number: AUR-APL-2013-09177

PATIENT
  Sex: Female

DRUGS (4)
  1. CLOPIDOGREL (CLOPIDOGREL) [Suspect]
     Indication: ANTICOAGULANT THERAPY
  2. CLOPIDOGREL (CLOPIDOGREL) [Suspect]
     Indication: CORONARY ARTERIAL STENT INSERTION
  3. ASPIRIN [Suspect]
     Indication: ANTICOAGULANT THERAPY
  4. ASPIRIN [Suspect]
     Indication: CORONARY ARTERIAL STENT INSERTION

REACTIONS (3)
  - Abdominal wall haematoma [None]
  - Extravasation [None]
  - Pulmonary embolism [None]
